FAERS Safety Report 5325719-X (Version None)
Quarter: 2007Q2

REPORT INFORMATION
  Report Type: 
  Country: None (occurrence: None)
  Receive Date: 20070509
  Receipt Date: 20070430
  Transmission Date: 20071010
  Serious: Yes (Other)
  Sender: FDA-Public Use
  Company Number: 233442K07USA

PATIENT
  Age: 15 Year
  Sex: Female

DRUGS (2)
  1. REBIF [Suspect]
     Indication: OFF LABEL USE
     Dosage: 22 MCG, 3 IN 1 WEEKS, SUBCUTANEOUS
     Route: 058
     Dates: start: 20031111
  2. STEROIDS (CORTICOSTEROID NOS) [Concomitant]

REACTIONS (6)
  - CONVULSION [None]
  - GASTRIC ULCER [None]
  - MENTAL IMPAIRMENT [None]
  - MIGRAINE [None]
  - PAIN [None]
  - PHOTOPHOBIA [None]
